FAERS Safety Report 23548889 (Version 1)
Quarter: 2024Q1

REPORT INFORMATION
  Report Type: Spontaneous
  Country: RS (occurrence: RS)
  Receive Date: 20240221
  Receipt Date: 20240221
  Transmission Date: 20240409
  Serious: Yes (Other)
  Sender: FDA-Public Use
  Company Number: RS-002147023-NVSC2024RS030956

PATIENT

DRUGS (1)
  1. RUXOLITINIB [Suspect]
     Active Substance: RUXOLITINIB
     Indication: Product used for unknown indication
     Dosage: 5 MG, BID
     Route: 065
     Dates: start: 201803

REACTIONS (9)
  - Acute myeloid leukaemia [Unknown]
  - Abdominal pain [Unknown]
  - Erythema [Unknown]
  - Cardiac arrest [Unknown]
  - Hyperaemia [Unknown]
  - Leukaemia cutis [Unknown]
  - Splenomegaly [Unknown]
  - Leukaemic infiltration [Unknown]
  - Transformation to acute myeloid leukaemia [Unknown]

NARRATIVE: CASE EVENT DATE: 20181002
